FAERS Safety Report 8003219-6 (Version None)
Quarter: 2011Q4

REPORT INFORMATION
  Report Type: 
  Country: None (occurrence: None)
  Receive Date: 20111222
  Receipt Date: 20111216
  Transmission Date: 20120403
  Serious: Yes (Other)
  Sender: FDA-Public Use
  Company Number: PHEH2011US011870

PATIENT
  Age: 51 Year
  Sex: Female

DRUGS (6)
  1. ANTACIDS [Concomitant]
     Dosage: UNK UKN, PRN
  2. FOSAMAX [Suspect]
     Dosage: 70 MG, QW
     Dates: start: 20111001
  3. RECLAST [Suspect]
     Dosage: UNK UKN, UNK
     Route: 042
  4. VITAMIN D [Concomitant]
     Dosage: UNK UKN, UNK
  5. VEGAN ACIDOPHILUS PB8 [Suspect]
     Dosage: UNK UKN, UNK
  6. ACETAMINOPHEN [Concomitant]
     Dosage: UNK UKN, PRN

REACTIONS (8)
  - MUSCULOSKELETAL DISCOMFORT [None]
  - PAIN IN JAW [None]
  - NASAL CONGESTION [None]
  - DEPRESSION [None]
  - FEELING ABNORMAL [None]
  - OSTEOPOROSIS [None]
  - ABDOMINAL DISTENSION [None]
  - FATIGUE [None]
